FAERS Safety Report 5361685-9 (Version None)
Quarter: 2007Q2

REPORT INFORMATION
  Report Type: 
  Country: None (occurrence: None)
  Receive Date: 20070530
  Receipt Date: 20070111
  Transmission Date: 20071010
  Serious: No
  Sender: FDA-Public Use
  Company Number: 2007PV028272

PATIENT
  Age: 69 Year
  Sex: Female
  Weight: 75.0703 kg

DRUGS (4)
  1. BYETTA [Suspect]
     Indication: DIABETES MELLITUS NON-INSULIN-DEPENDENT
     Dosage: 10;5 MCG;BID;SC
     Route: 058
     Dates: start: 20061129, end: 20061228
  2. BYETTA [Suspect]
     Indication: DIABETES MELLITUS NON-INSULIN-DEPENDENT
     Dosage: 10;5 MCG;BID;SC
     Route: 058
     Dates: start: 20061229
  3. GLUCOTROL [Concomitant]
  4. AVANDIA [Concomitant]

REACTIONS (3)
  - DECREASED APPETITE [None]
  - EARLY SATIETY [None]
  - WEIGHT DECREASED [None]
